FAERS Safety Report 4573351-8 (Version None)
Quarter: 2005Q1

REPORT INFORMATION
  Report Type: 
  Country: None (occurrence: None)
  Receive Date: 20050208
  Receipt Date: 20040806
  Transmission Date: 20050727
  Serious: No
  Sender: FDA-Public Use
  Company Number: US-GLAXOSMITHKLINE-A0521303A

PATIENT
  Sex: Male

DRUGS (2)
  1. PAXIL [Suspect]
     Dosage: 10MG PER DAY
     Route: 048
     Dates: end: 20040804
  2. XANAX [Concomitant]

REACTIONS (1)
  - DIZZINESS [None]
